FAERS Safety Report 9821623 (Version 2)
Quarter: 2014Q3

REPORT INFORMATION
  Report Type: Spontaneous
  Country: US (occurrence: US)
  Receive Date: 20140116
  Receipt Date: 20140822
  Transmission Date: 20150326
  Serious: Yes (Hospitalization, Other)
  Sender: FDA-Public Use
  Company Number: US-009507513-1401USA005604

PATIENT
  Sex: Female
  Weight: 70 kg

DRUGS (1)
  1. NUVARING [Suspect]
     Active Substance: ETHINYL ESTRADIOL\ETONOGESTREL
     Indication: MENOPAUSAL SYMPTOMS
     Dosage: UNK, QM
     Route: 067
     Dates: start: 20100616, end: 20100720

REACTIONS (4)
  - Pulmonary embolism [Unknown]
  - Hypoxia [Unknown]
  - Off label use [Recovered/Resolved]
  - Pneumonia [Unknown]

NARRATIVE: CASE EVENT DATE: 20100616
